FAERS Safety Report 26149696 (Version 1)
Quarter: 2025Q4

REPORT INFORMATION
  Report Type: Spontaneous
  Country: US (occurrence: None)
  Receive Date: 20251212
  Receipt Date: 20251212
  Transmission Date: 20260118
  Serious: Yes (Death)
  Sender: FDA-CTU
  Company Number: None

PATIENT
  Age: 73 Year
  Sex: Female
  Weight: 65.8 kg

DRUGS (3)
  1. CARBOPLATIN [Suspect]
     Active Substance: CARBOPLATIN
     Dosage: OTHER QUANTITY : 145 MILLION IU;
     Dates: end: 20250903
  2. TAXOL [Suspect]
     Active Substance: PACLITAXEL
     Dates: end: 20250903
  3. PEMBROLIZUMAB [Suspect]
     Active Substance: PEMBROLIZUMAB
     Dates: end: 20250903

REACTIONS (4)
  - Hepatitis viral [None]
  - Cholangitis sclerosing [None]
  - Multiple organ dysfunction syndrome [None]
  - Renal replacement therapy [None]

NARRATIVE: CASE EVENT DATE: 20250922
